FAERS Safety Report 12729754 (Version 1)
Quarter: 2016Q3

REPORT INFORMATION
  Report Type: Other
  Country: DE (occurrence: DE)
  Receive Date: 20160909
  Receipt Date: 20160909
  Transmission Date: 20161109
  Serious: Yes (Hospitalization)
  Sender: FDA-Public Use
  Company Number: DE-SHIRE-DE201611763

PATIENT
  Age: 79 Year
  Sex: Female

DRUGS (1)
  1. XAGRID [Suspect]
     Active Substance: ANAGRELIDE HYDROCHLORIDE
     Indication: PRODUCT USED FOR UNKNOWN INDICATION
     Dosage: 0.5 MG, 3X/DAY:TID
     Route: 048
     Dates: end: 20160628

REACTIONS (3)
  - Haematoma [Recovered/Resolved]
  - Neoplasm [Unknown]
  - Thrombocytosis [Unknown]

NARRATIVE: CASE EVENT DATE: 201606
